FAERS Safety Report 14952535 (Version 3)
Quarter: 2018Q2

REPORT INFORMATION
  Report Type: Spontaneous
  Country: US (occurrence: US)
  Receive Date: 20180530
  Receipt Date: 20180611
  Transmission Date: 20180711
  Serious: No
  Sender: FDA-Public Use
  Company Number: US-PFIZER INC-2018216822

PATIENT
  Age: 73 Year
  Sex: Female
  Weight: 89.8 kg

DRUGS (3)
  1. GLIPIZIDE XL [Suspect]
     Active Substance: GLIPIZIDE
     Indication: DIABETES MELLITUS
     Dosage: 5 MG, 2X/DAY (ONE IN THE MORNING, ONE IN THE EVENING)
     Route: 048
  2. GLIPIZIDE XL [Suspect]
     Active Substance: GLIPIZIDE
     Dosage: 5 MG, 3X/DAY (2 X 5MG XL AM AND 5MG XL PM)
  3. VASOTEC [Concomitant]
     Active Substance: ENALAPRIL MALEATE
     Indication: BLOOD PRESSURE ABNORMAL
     Dosage: UNK, 2X/DAY (5 IN THE MORNING AND 5 IN THE EVENING)

REACTIONS (5)
  - Pallor [Unknown]
  - Gait disturbance [Unknown]
  - Drug ineffective [Not Recovered/Not Resolved]
  - Nausea [Not Recovered/Not Resolved]
  - Tremor [Unknown]

NARRATIVE: CASE EVENT DATE: 20180528
